FAERS Safety Report 4416196-1 (Version None)
Quarter: 2004Q3

REPORT INFORMATION
  Report Type: 
  Country: None (occurrence: None)
  Receive Date: 20040804
  Receipt Date: 20040804
  Transmission Date: 20050211
  Serious: Yes (Hospitalization)
  Sender: FDA-Public Use
  Company Number: None

PATIENT
  Age: 89 Year
  Sex: Male
  Weight: 70.3075 kg

DRUGS (1)
  1. XELODA [Suspect]
     Dosage: SEVERAL DAYS

REACTIONS (4)
  - ARTHRALGIA [None]
  - METASTASES TO BONE [None]
  - PALMAR-PLANTAR ERYTHRODYSAESTHESIA SYNDROME [None]
  - PELVIC PAIN [None]
